FAERS Safety Report 9787504 (Version 1)
Quarter: 2013Q4

REPORT INFORMATION
  Report Type: Spontaneous
  Country: AR (occurrence: AR)
  Receive Date: 20131230
  Receipt Date: 20131230
  Transmission Date: 20140711
  Serious: Yes (Life-Threatening, Hospitalization)
  Sender: FDA-Public Use
  Company Number: AR-BRISTOL-MYERS SQUIBB COMPANY-19936434

PATIENT
  Sex: Male

DRUGS (1)
  1. BELATACEPT [Suspect]

REACTIONS (3)
  - Abdominal cavity drainage [Unknown]
  - Venous haemorrhage [Unknown]
  - Renal disorder [Unknown]
